FAERS Safety Report 7148054-6 (Version None)
Quarter: 2010Q4

REPORT INFORMATION
  Report Type: 
  Country: None (occurrence: None)
  Receive Date: 20101207
  Receipt Date: 20101207
  Transmission Date: 20110411
  Serious: Yes (Life-Threatening, Hospitalization)
  Sender: FDA-Public Use
  Company Number: None

PATIENT
  Age: 62 Year
  Sex: Male
  Weight: 84 kg

DRUGS (2)
  1. IBUPROFEN [Suspect]
     Dates: start: 20101012, end: 20101112
  2. ASPIRIN [Suspect]
     Dates: start: 20101012, end: 20101112

REACTIONS (2)
  - SELF-MEDICATION [None]
  - UPPER GASTROINTESTINAL HAEMORRHAGE [None]
